FAERS Safety Report 5942711-2 (Version None)
Quarter: 2008Q4

REPORT INFORMATION
  Report Type: 
  Country: None (occurrence: None)
  Receive Date: 20081103
  Receipt Date: 20081021
  Transmission Date: 20090506
  Serious: Yes (Hospitalization)
  Sender: FDA-Public Use
  Company Number: 2008BI006495

PATIENT
  Age: 68 Year
  Sex: Female
  Weight: 71.6683 kg

DRUGS (3)
  1. AVONEX [Suspect]
     Indication: MULTIPLE SCLEROSIS
     Dosage: 30 UG;QW;IM
     Route: 030
     Dates: start: 20001121, end: 20030101
  2. AVONEX [Suspect]
     Indication: MULTIPLE SCLEROSIS
     Dosage: 30 UG;QW;IM
     Route: 030
     Dates: start: 20030101
  3. . [Concomitant]

REACTIONS (9)
  - ARTHROPATHY [None]
  - ASTHENIA [None]
  - CONDITION AGGRAVATED [None]
  - DIPLOPIA [None]
  - FATIGUE [None]
  - MULTIPLE SCLEROSIS [None]
  - MYOPIA [None]
  - OSTEOARTHRITIS [None]
  - RETINAL DISORDER [None]
